FAERS Safety Report 9463495 (Version 1)
Quarter: 2013Q3

REPORT INFORMATION
  Report Type: Spontaneous
  Country: US (occurrence: US)
  Receive Date: 20130819
  Receipt Date: 20130819
  Transmission Date: 20140515
  Serious: Yes (Hospitalization)
  Sender: FDA-Public Use
  Company Number: US-RANBAXY-2013US-72247

PATIENT
  Age: 43 Year
  Sex: Female

DRUGS (7)
  1. MORPHINE [Suspect]
     Indication: NEURALGIA
     Dosage: 100 MG, BID
     Route: 048
  2. HYDROMORPHONE [Suspect]
     Indication: PAIN
     Dosage: 8-16 MG EVERY 2 HOURS AS NEEDED
     Route: 048
  3. MORPHINE [Suspect]
     Indication: PAIN
     Dosage: 60 MG EVERY 2 HOURS AS NEEDED
     Route: 060
  4. IBUPROFEN [Concomitant]
     Indication: PRODUCT USED FOR UNKNOWN INDICATION
     Route: 065
  5. GABAPENTIN [Concomitant]
     Indication: PRODUCT USED FOR UNKNOWN INDICATION
     Route: 065
  6. NORTRIPTYLINE [Concomitant]
     Indication: PRODUCT USED FOR UNKNOWN INDICATION
     Route: 065
  7. OXYCODONE [Concomitant]
     Indication: PRODUCT USED FOR UNKNOWN INDICATION
     Dosage: UNK
     Route: 065

REACTIONS (2)
  - Hyperaesthesia [Recovered/Resolved]
  - Allodynia [Recovered/Resolved]
